FAERS Safety Report 8354022-9 (Version None)
Quarter: 2012Q2

REPORT INFORMATION
  Report Type: 
  Country: None (occurrence: None)
  Receive Date: 20120511
  Receipt Date: 20120504
  Transmission Date: 20120825
  Serious: Yes (Hospitalization)
  Sender: FDA-Public Use
  Company Number: US-BAYER-2011-072599

PATIENT
  Age: 35 Year
  Sex: Female
  Weight: 79 kg

DRUGS (4)
  1. YAZ [Suspect]
     Indication: ENDOMETRIOSIS
  2. NIFEREX [Concomitant]
     Indication: MINERAL SUPPLEMENTATION
     Dosage: UNK
     Dates: start: 20080911, end: 20080930
  3. NAPROXEN [Concomitant]
     Indication: MUSCULOSKELETAL PAIN
     Dosage: 440 MG, UNK
     Route: 048
     Dates: start: 20080930
  4. YAZ [Suspect]
     Indication: ACNE
     Dosage: UNK
     Dates: start: 20070212, end: 20081001

REACTIONS (5)
  - EMOTIONAL DISTRESS [None]
  - ANXIETY [None]
  - CHEST PAIN [None]
  - CHEST DISCOMFORT [None]
  - PULMONARY EMBOLISM [None]
